FAERS Safety Report 4726845-6 (Version None)
Quarter: 2005Q3

REPORT INFORMATION
  Report Type: 
  Country: None (occurrence: None)
  Receive Date: 20050726
  Receipt Date: 20050713
  Transmission Date: 20060218
  Serious: Yes (Hospitalization, Other)
  Sender: FDA-Public Use
  Company Number: 2005099774

PATIENT
  Age: 70 Year
  Sex: Female

DRUGS (1)
  1. PREDNISONE [Suspect]
     Indication: SJOGREN'S SYNDROME
     Dosage: 5 MG 1 D
     Dates: start: 20000101

REACTIONS (12)
  - ALANINE AMINOTRANSFERASE INCREASED [None]
  - ALDOLASE INCREASED [None]
  - ASPARTATE AMINOTRANSFERASE INCREASED [None]
  - BLOOD LACTATE DEHYDROGENASE INCREASED [None]
  - CONDITION AGGRAVATED [None]
  - DYSSTASIA [None]
  - HEPATITIS C RNA POSITIVE [None]
  - LIVER DISORDER [None]
  - PLATELET COUNT DECREASED [None]
  - POLYMYOSITIS [None]
  - PROTEIN TOTAL INCREASED [None]
  - RHEUMATOID FACTOR POSITIVE [None]
